FAERS Safety Report 10174236 (Version 1)
Quarter: 2014Q2

REPORT INFORMATION
  Report Type: Spontaneous
  Country: US (occurrence: None)
  Receive Date: 20140416
  Receipt Date: 20140416
  Transmission Date: 20141212
  Serious: Yes (Other)
  Sender: FDA-Public Use
  Company Number: 163-POMAL-14012703

PATIENT
  Age: 66 Year
  Sex: Female
  Weight: 72.6 kg

DRUGS (17)
  1. ZOLPIDEM (ZOLPIDEM) (UNKNOWN) (ZOLPIDEM) [Concomitant]
  2. POMALYST [Suspect]
     Indication: PLASMA CELL MYELOMA
     Route: 048
     Dates: start: 20130402
  3. PRISTIQ (DESVENLAFAXINSUCCINATE) (UNKNOWN) [Concomitant]
  4. NORTRIPTYLINE HCL (NORTRIPTYLINE HYDROCHLORIDE) (UNKNOWN) [Concomitant]
  5. METFORMIN (METFORMIN) (UNKNOWN) [Concomitant]
  6. METOPROLOL (METOPROLOL) (UNKNOWN) [Concomitant]
  7. SPIRONOLACTONE  (SPIRONOLATONE) (UNKNOWN) [Concomitant]
  8. PREDNISONE (PREDNISONE) (UNKNOWN) [Concomitant]
  9. BENZONATATE (BENZONATATE) (UNKNOWN) [Concomitant]
  10. CEFUROXIME (CEFUROXIME) (UNKNOWN) [Concomitant]
  11. CHERATUSSIN (CHERATUSSIN COUGH SYRUP) (UNKNOWN) [Concomitant]
  12. AMOXICILLIN (AMOXICILLIN) (UNKNOWN) [Concomitant]
  13. PROVENTIL HFA (SALBUTAMOL) (UNKNOWN) [Concomitant]
  14. DOXYCYCLINE (DOXYCYCLINE) (UNKNOWN) [Concomitant]
  15. GABAPENTIN (GABAPENTIN) (UNKNOWN) (GABAPENTIN) [Concomitant]
  16. DEXAMETHASONE (DEXAMETHASONE) (UNKNOWN) [Concomitant]
  17. MELOXICAM (MELOXICAM) (UNKNOWN) [Concomitant]

REACTIONS (1)
  - Bronchitis [None]
